FAERS Safety Report 9966698 (Version 1)
Quarter: 2014Q1

REPORT INFORMATION
  Report Type: Report from Study
  Country: US (occurrence: US)
  Receive Date: 20140305
  Receipt Date: 20140305
  Transmission Date: 20141002
  Serious: No
  Sender: FDA-Public Use
  Company Number: US-ABBVIE-13P-163-1120572-00

PATIENT
  Sex: Female

DRUGS (4)
  1. HUMIRA [Suspect]
     Indication: RHEUMATOID ARTHRITIS
  2. WARFARIN [Concomitant]
     Indication: THROMBOSIS
  3. ENALAPRIL [Concomitant]
     Indication: BLOOD PRESSURE MANAGEMENT
  4. HCTZ [Concomitant]
     Indication: HYPERTENSION

REACTIONS (2)
  - Injection site erythema [Recovered/Resolved]
  - Injection site haemorrhage [Recovered/Resolved]
